FAERS Safety Report 9087443 (Version 1)
Quarter: 2013Q1

REPORT INFORMATION
  Report Type: Spontaneous
  Country: JP (occurrence: JP)
  Receive Date: 20130201
  Receipt Date: 20130201
  Transmission Date: 20140127
  Serious: Yes (Hospitalization, Other)
  Sender: FDA-Public Use
  Company Number: PHHY2013JP006459

PATIENT
  Age: 64 Year
  Sex: Female
  Weight: 40 kg

DRUGS (7)
  1. CLARITHROMYCIN SANDOZ [Suspect]
     Indication: MYCOBACTERIUM AVIUM COMPLEX INFECTION
     Dosage: 400 MG, QD
     Route: 048
     Dates: start: 2003, end: 2008
  2. CLARITHROMYCIN SANDOZ [Suspect]
     Dosage: 800 MG, UNK
     Route: 048
     Dates: start: 2008, end: 201105
  3. CLARITHROMYCIN SANDOZ [Suspect]
     Dosage: UNK
     Route: 048
     Dates: start: 201110
  4. ESANBUTOL [Suspect]
     Indication: MYCOBACTERIUM AVIUM COMPLEX INFECTION
     Dosage: 750 MG, UNK
     Route: 048
     Dates: start: 2008, end: 201105
  5. ESANBUTOL [Suspect]
     Dosage: UNK
     Route: 048
     Dates: start: 201110
  6. RIFAMPICIN [Suspect]
     Indication: MYCOBACTERIUM AVIUM COMPLEX INFECTION
     Dosage: 450 MG, UNK
     Route: 048
     Dates: start: 2008, end: 201105
  7. RIFAMPICIN [Suspect]
     Dosage: UNK
     Route: 048
     Dates: start: 201110

REACTIONS (10)
  - Mycobacterium avium complex infection [Recovered/Resolved]
  - Pyrexia [Recovered/Resolved]
  - Cough [Recovered/Resolved]
  - Interstitial lung disease [Recovered/Resolved]
  - Chest pain [Recovered/Resolved]
  - Pleural effusion [Recovered/Resolved]
  - Bronchiectasis [Recovered/Resolved]
  - Pleurisy [Recovered/Resolved]
  - Pneumothorax [Recovered/Resolved]
  - Hypoaesthesia [Recovered/Resolved]
